FAERS Safety Report 8621310-8 (Version None)
Quarter: 2012Q3

REPORT INFORMATION
  Report Type: 
  Country: None (occurrence: None)
  Receive Date: 20120824
  Receipt Date: 20120821
  Transmission Date: 20120928
  Serious: Yes (Other)
  Sender: FDA-Public Use
  Company Number: JP-PFIZER INC-2012204954

PATIENT
  Age: 4 Decade
  Sex: Male

DRUGS (1)
  1. LYRICA [Suspect]
     Indication: INTERVERTEBRAL DISC PROTRUSION
     Dosage: 450 MG (6 CAPSULES OF 75 MG) DAILY
     Route: 048

REACTIONS (2)
  - INTERVERTEBRAL DISC DISORDER [None]
  - DIZZINESS [None]
